FAERS Safety Report 10072222 (Version 2)
Quarter: 2014Q2

REPORT INFORMATION
  Report Type: Spontaneous
  Country: SE (occurrence: SE)
  Receive Date: 20140411
  Receipt Date: 20140411
  Transmission Date: 20141212
  Serious: Yes (Hospitalization)
  Sender: FDA-Public Use
  Company Number: PHHY2014SE002768

PATIENT
  Sex: 0

DRUGS (1)
  1. TEGRETOL [Suspect]
     Indication: TRIGEMINAL NEURALGIA
     Dosage: UNK UKN, UNK

REACTIONS (4)
  - Ocular hyperaemia [Unknown]
  - Cough [Unknown]
  - Pyrexia [Unknown]
  - Rash [Unknown]
